FAERS Safety Report 13794899 (Version 1)
Quarter: 2017Q3

REPORT INFORMATION
  Report Type: Report from Study
  Country: CA (occurrence: CA)
  Receive Date: 20170726
  Receipt Date: 20170726
  Transmission Date: 20171127
  Serious: Yes (Other)
  Sender: FDA-Public Use
  Company Number: CA-AMGEN-CANSL2016169950

PATIENT
  Age: 79 Year
  Sex: Female

DRUGS (3)
  1. PROLIA [Suspect]
     Active Substance: DENOSUMAB
     Indication: PRODUCT USED FOR UNKNOWN INDICATION
     Dosage: UNK
     Route: 065
     Dates: start: 20121126
  2. CALCIUM/VITAMIN D [Concomitant]
     Active Substance: CALCIUM\VITAMIN D
     Dosage: UNK, 6 DROPS PER DAY
  3. FISH OIL OMEGA 3 [Concomitant]
     Active Substance: FISH OIL

REACTIONS (8)
  - Onychoclasis [Unknown]
  - Metastases to breast [Unknown]
  - Nail bed bleeding [Unknown]
  - Pruritus generalised [Not Recovered/Not Resolved]
  - Ill-defined disorder [Unknown]
  - Skin haemorrhage [Unknown]
  - Procedural pain [Not Recovered/Not Resolved]
  - Rash pruritic [Unknown]

NARRATIVE: CASE EVENT DATE: 2015
